FAERS Safety Report 23564170 (Version 1)
Quarter: 2024Q1

REPORT INFORMATION
  Report Type: Spontaneous
  Country: IT (occurrence: IT)
  Receive Date: 20240226
  Receipt Date: 20240226
  Transmission Date: 20240410
  Serious: Yes (Death)
  Sender: FDA-Public Use
  Company Number: None

PATIENT
  Age: 69 Year
  Sex: Male
  Weight: 85 kg

DRUGS (1)
  1. RIFAXIMIN [Suspect]
     Active Substance: RIFAXIMIN
     Indication: Gastroenteritis
     Route: 048
     Dates: start: 20240131, end: 20240201

REACTIONS (4)
  - Respiratory tract oedema [Fatal]
  - Anaphylactic shock [Fatal]
  - Cardio-respiratory arrest [Fatal]
  - Bronchospasm [Fatal]

NARRATIVE: CASE EVENT DATE: 20240201
